FAERS Safety Report 9778826 (Version 3)
Quarter: 2014Q1

REPORT INFORMATION
  Report Type: Report from Study
  Country: US (occurrence: US)
  Receive Date: 20131223
  Receipt Date: 20140106
  Transmission Date: 20141002
  Serious: Yes (Other)
  Sender: FDA-Public Use
  Company Number: US-PFIZER INC-2013357483

PATIENT
  Age: 56 Year
  Sex: Male
  Weight: 78.91 kg

DRUGS (7)
  1. TOFACITINIB CITRATE [Suspect]
     Indication: PSORIASIS
     Dosage: 10 MG, 2X/DAY
     Route: 048
     Dates: start: 20120209, end: 20131029
  2. METROGEL [Concomitant]
     Indication: ROSACEA
     Dosage: 1 DF (APP), 1X/DAY
     Route: 061
     Dates: start: 20120509
  3. ELIGARD [Concomitant]
     Indication: PROSTATE CANCER
     Dosage: 45 MG, 1X/DAY
     Route: 051
     Dates: start: 20131127, end: 20131127
  4. CASODEX [Concomitant]
     Indication: PROSTATE CANCER
     Dosage: 50 MG, 1X/DAY
     Route: 048
     Dates: start: 20131127
  5. CALCIUM [Concomitant]
     Indication: ROUTINE HEALTH MAINTENANCE
     Dosage: 1200 MG, 1X/DAY
     Route: 048
     Dates: start: 20131127
  6. VITAMIN D3 [Concomitant]
     Indication: ROUTINE HEALTH MAINTENANCE
     Dosage: 800 MG, 1X/DAY
     Route: 048
     Dates: start: 20131127
  7. MAGNESIUM [Concomitant]
     Indication: ROUTINE HEALTH MAINTENANCE
     Dosage: 1 DF (TAB), 1X/DAY
     Route: 048
     Dates: start: 20131127

REACTIONS (1)
  - Colon cancer [Not Recovered/Not Resolved]
